FAERS Safety Report 5498471-5 (Version None)
Quarter: 2007Q4

REPORT INFORMATION
  Report Type: 
  Country: None (occurrence: None)
  Receive Date: 20071024
  Receipt Date: 20071012
  Transmission Date: 20080405
  Serious: Yes (Other)
  Sender: FDA-Public Use
  Company Number: 2007AP001146

PATIENT
  Age: 63 Year
  Sex: Male

DRUGS (6)
  1. MEGESTROL ACETATE [Suspect]
     Indication: CACHEXIA
     Dosage: 400 MG; QD;
  2. CARBOPLATIN [Concomitant]
  3. PACLITAXEL [Concomitant]
  4. DOCETAXEL [Concomitant]
  5. PEMETREXED [Concomitant]
  6. ENOXAPARIN SODIUM [Concomitant]

REACTIONS (9)
  - ADRENAL INSUFFICIENCY [None]
  - ANDROGEN DEFICIENCY [None]
  - BLOOD TESTOSTERONE DECREASED [None]
  - DECREASED APPETITE [None]
  - DIZZINESS POSTURAL [None]
  - FATIGUE [None]
  - HAEMOGLOBIN DECREASED [None]
  - METASTASES TO KIDNEY [None]
  - METASTASES TO LIVER [None]
